FAERS Safety Report 12469616 (Version 2)
Quarter: 2016Q3

REPORT INFORMATION
  Report Type: Spontaneous
  Country: DE (occurrence: DE)
  Receive Date: 20160615
  Receipt Date: 20160707
  Transmission Date: 20161109
  Serious: Yes (Other)
  Sender: FDA-Public Use
  Company Number: DE-ALLERGAN-1660111US

PATIENT
  Age: 41 Year
  Sex: Female

DRUGS (2)
  1. ESMYA [Suspect]
     Active Substance: ULIPRISTAL ACETATE
     Indication: UTERINE LEIOMYOMA
     Dosage: 5 MG, QD
     Route: 048
     Dates: start: 20160509
  2. ESMYA [Suspect]
     Active Substance: ULIPRISTAL ACETATE
     Dosage: 5 MG, QD
     Route: 048
     Dates: start: 201407, end: 201410

REACTIONS (1)
  - Rheumatoid arthritis [Not Recovered/Not Resolved]

NARRATIVE: CASE EVENT DATE: 20160520
